FAERS Safety Report 6308303-0 (Version None)
Quarter: 2009Q3

REPORT INFORMATION
  Report Type: 
  Country: None (occurrence: None)
  Receive Date: 20090813
  Receipt Date: 20090806
  Transmission Date: 20100115
  Serious: Yes (Other)
  Sender: FDA-Public Use
  Company Number: US-MERCK-0908USA01043

PATIENT
  Age: 60 Year
  Sex: Female

DRUGS (2)
  1. FOSAMAX [Suspect]
     Indication: OSTEOPOROSIS
     Route: 048
     Dates: start: 20090501
  2. PULMICORT-100 [Concomitant]
     Route: 065

REACTIONS (1)
  - PANCREATITIS [None]
